FAERS Safety Report 7213830-8 (Version None)
Quarter: 2011Q1

REPORT INFORMATION
  Report Type: 
  Country: None (occurrence: None)
  Receive Date: 20110106
  Receipt Date: 20101214
  Transmission Date: 20110831
  Serious: Yes (Hospitalization)
  Sender: FDA-Public Use
  Company Number: PHHO2010IT18877

PATIENT
  Sex: Male
  Weight: 71 kg

DRUGS (10)
  1. BISOPROLOL [Concomitant]
     Indication: CARDIAC FAILURE
  2. ALISKIREN [Suspect]
     Indication: CARDIAC FAILURE
     Route: 048
     Dates: start: 20100414
  3. COMPARATOR ENALAPRIL [Suspect]
     Indication: CARDIAC FAILURE
     Dosage: UNK
     Route: 048
     Dates: start: 20100414
  4. FRUSEMIDE [Concomitant]
     Indication: CARDIAC FAILURE
  5. DIGOXIN [Concomitant]
     Indication: ATRIAL FIBRILLATION
  6. BLINDED NO TREATMENT RECEIVED [Suspect]
     Dosage: DOUBLE BLIND
     Route: 048
     Dates: end: 20101212
  7. BLINDED ALISKIREN [Suspect]
     Dosage: DOUBLE BLIND
     Route: 048
     Dates: end: 20101212
  8. BLINDED ENALAPRIL [Suspect]
     Dosage: DOUBLE BLIND
     Route: 048
     Dates: end: 20101212
  9. WARFARIN [Concomitant]
     Indication: ATRIAL FIBRILLATION
  10. INSULIN [Concomitant]
     Indication: DIABETES MELLITUS

REACTIONS (4)
  - HYPOTENSION [None]
  - ATRIAL FIBRILLATION [None]
  - DISEASE PROGRESSION [None]
  - CARDIAC FAILURE [None]
